FAERS Safety Report 7327113-9 (Version None)
Quarter: 2011Q1

REPORT INFORMATION
  Report Type: 
  Country: None (occurrence: None)
  Receive Date: 20110302
  Receipt Date: 20110223
  Transmission Date: 20110831
  Serious: Yes (Other)
  Sender: FDA-Public Use
  Company Number: US-AMGEN-USASP2011007859

PATIENT
  Age: 74 Year
  Sex: Female
  Weight: 130.2 kg

DRUGS (9)
  1. PROLIA [Suspect]
     Indication: OSTEOPOROSIS POSTMENOPAUSAL
     Dosage: 60 MG, Q6MO
     Dates: start: 20100108
  2. BONIVA [Concomitant]
     Dates: end: 20101107
  3. VITAMIN A [Concomitant]
  4. LEXAPRO [Concomitant]
  5. CITRACAL [Concomitant]
  6. BENADRYL [Concomitant]
  7. LUTEIN [Concomitant]
     Dosage: UNK
  8. CENTRUM SILVER                     /01292501/ [Concomitant]
     Dosage: UNK
  9. VITAMIN B12                        /00056201/ [Concomitant]

REACTIONS (3)
  - MOBILITY DECREASED [None]
  - MUSCULAR WEAKNESS [None]
  - DISCOMFORT [None]
